FAERS Safety Report 5778634-1 (Version None)
Quarter: 2008Q2

REPORT INFORMATION
  Report Type: 
  Country: None (occurrence: None)
  Receive Date: 20080619
  Receipt Date: 20080613
  Transmission Date: 20081010
  Serious: Yes (Other)
  Sender: FDA-Public Use
  Company Number: A0730916A

PATIENT
  Age: 22 Year
  Sex: Female
  Weight: 57.7 kg

DRUGS (2)
  1. TREXIMET [Suspect]
     Indication: MIGRAINE
     Dosage: 85MG SINGLE DOSE
     Route: 048
     Dates: start: 20080523
  2. PREVACID [Concomitant]
     Route: 048
     Dates: start: 20070901

REACTIONS (6)
  - ABASIA [None]
  - CHEST DISCOMFORT [None]
  - DIZZINESS [None]
  - PARAESTHESIA [None]
  - SPEECH DISORDER [None]
  - THROAT TIGHTNESS [None]
